FAERS Safety Report 12589898 (Version 1)
Quarter: 2016Q3

REPORT INFORMATION
  Report Type: Spontaneous
  Country: GR (occurrence: GR)
  Receive Date: 20160725
  Receipt Date: 20160725
  Transmission Date: 20161109
  Serious: Yes (Other)
  Sender: FDA-Public Use
  Company Number: GR-BAYER-2016-142413

PATIENT
  Age: 37 Year
  Sex: Female

DRUGS (2)
  1. ULTRAVIST [Suspect]
     Active Substance: IOPROMIDE
     Indication: COMPUTERISED TOMOGRAM ABDOMEN
  2. ULTRAVIST [Suspect]
     Active Substance: IOPROMIDE
     Indication: COMPUTERISED TOMOGRAM THORAX
     Dosage: UNK
     Route: 042
     Dates: start: 20160720, end: 20160720

REACTIONS (4)
  - Peripheral swelling [None]
  - Discomfort [None]
  - Injection site extravasation [None]
  - Vein rupture [None]

NARRATIVE: CASE EVENT DATE: 20160720
